FAERS Safety Report 5372777-2 (Version None)
Quarter: 2007Q2

REPORT INFORMATION
  Report Type: 
  Country: None (occurrence: None)
  Receive Date: 20070627
  Receipt Date: 20070615
  Transmission Date: 20071010
  Serious: Yes (Other)
  Sender: FDA-Public Use
  Company Number: GB-PFIZER INC-2007044519

PATIENT
  Age: 37 Year
  Sex: Male
  Weight: 74.6 kg

DRUGS (2)
  1. CHAMPIX [Suspect]
     Indication: SMOKING CESSATION THERAPY
     Route: 048
  2. ANTIDEPRESSANTS [Concomitant]

REACTIONS (3)
  - DEPRESSED MOOD [None]
  - PARANOIA [None]
  - SLEEP DISORDER [None]
